FAERS Safety Report 10098540 (Version 2)
Quarter: 2014Q2

REPORT INFORMATION
  Report Type: Spontaneous
  Country: US (occurrence: US)
  Receive Date: 20140423
  Receipt Date: 20140516
  Transmission Date: 20141212
  Serious: Yes (Hospitalization)
  Sender: FDA-Public Use
  Company Number: US-BAYER-2014-057897

PATIENT
  Age: 42 Year
  Sex: Female
  Weight: 124.72 kg

DRUGS (3)
  1. YASMIN [Suspect]
     Dosage: UNK
  2. IMITREX [Concomitant]
  3. PREVACID [Concomitant]

REACTIONS (4)
  - Cerebrovascular accident [None]
  - Injury [None]
  - Pain [None]
  - Pain [None]
